FAERS Safety Report 18553654 (Version 1)
Quarter: 2020Q4

REPORT INFORMATION
  Report Type: Spontaneous
  Country: US (occurrence: US)
  Receive Date: 20201127
  Receipt Date: 20201127
  Transmission Date: 20210114
  Serious: No
  Sender: FDA-Public Use
  Company Number: US-CELGENEUS-USA-20201104657

PATIENT
  Sex: Female

DRUGS (1)
  1. POMALYST [Suspect]
     Active Substance: POMALIDOMIDE
     Indication: PLASMA CELL MYELOMA
     Dosage: 2 MILLIGRAM
     Route: 048
     Dates: start: 202006

REACTIONS (6)
  - Hair growth abnormal [Unknown]
  - Erythema [Unknown]
  - Alopecia [Unknown]
  - Ingrown hair [Unknown]
  - Skin warm [Unknown]
  - Tenderness [Unknown]

NARRATIVE: CASE EVENT DATE: 2020
